FAERS Safety Report 5608705-1 (Version None)
Quarter: 2008Q1

REPORT INFORMATION
  Report Type: 
  Country: None (occurrence: None)
  Receive Date: 20080131
  Receipt Date: 20080118
  Transmission Date: 20080703
  Serious: Yes (Death, Hospitalization, Other)
  Sender: FDA-Public Use
  Company Number: NL-PFIZER INC-2008006555

PATIENT
  Age: 91 Year
  Sex: Male

DRUGS (6)
  1. SPIRONOLACTONE [Suspect]
     Indication: CARDIAC FAILURE
     Route: 048
  2. SPIRONOLACTONE [Suspect]
     Indication: ATRIAL FIBRILLATION
  3. ENALAPRIL [Suspect]
     Indication: CARDIAC FAILURE
     Dosage: DAILY DOSE:5MG
     Route: 048
  4. FUROSEMIDE [Suspect]
     Indication: CARDIAC FAILURE
     Route: 048
  5. ACENOCOUMAROL [Concomitant]
     Route: 048
  6. DIGOXIN [Concomitant]
     Route: 048

REACTIONS (7)
  - CARDIAC FAILURE [None]
  - CONDITION AGGRAVATED [None]
  - HYPERKALAEMIA [None]
  - HYPOTENSION [None]
  - PULMONARY OEDEMA [None]
  - RENAL IMPAIRMENT [None]
  - SYNCOPE [None]
